FAERS Safety Report 6089653-2 (Version None)
Quarter: 2009Q1

REPORT INFORMATION
  Report Type: 
  Country: None (occurrence: None)
  Receive Date: 20090224
  Receipt Date: 20090219
  Transmission Date: 20090719
  Serious: No
  Sender: FDA-Public Use
  Company Number: US-B.I. PHARMACEUTICALS,INC./RIDGEFIELD-2009-BP-01364BP

PATIENT
  Sex: Female

DRUGS (8)
  1. SPIRIVA [Suspect]
     Indication: CHRONIC OBSTRUCTIVE PULMONARY DISEASE
     Dosage: 18MCG
     Route: 055
     Dates: start: 20070101
  2. ADVAIR HFA [Concomitant]
     Indication: CHRONIC OBSTRUCTIVE PULMONARY DISEASE
     Route: 055
  3. ACTONEL [Concomitant]
     Indication: OSTEOPOROSIS
     Route: 048
     Dates: start: 20030101
  4. ASPIRIN [Concomitant]
     Indication: PROPHYLAXIS
     Dosage: 81MG
     Route: 048
  5. MULTI-VITAMINS [Concomitant]
     Indication: PROPHYLAXIS
     Route: 048
  6. MIRAPEX [Concomitant]
  7. COMP THYROID [Concomitant]
  8. PROVENTIL-HFA [Concomitant]

REACTIONS (2)
  - DYSPNOEA [None]
  - SINUS CONGESTION [None]
